FAERS Safety Report 17523116 (Version 2)
Quarter: 2020Q3

REPORT INFORMATION
  Report Type: Report from Study
  Country: None (occurrence: DE)
  Receive Date: 20200311
  Receipt Date: 20200803
  Transmission Date: 20201102
  Serious: Yes (Hospitalization)
  Sender: FDA-Public Use
  Company Number: DE-ABBVIE-20K-062-3251620-00

PATIENT
  Age: 61 Year
  Sex: Female

DRUGS (4)
  1. MTX [Concomitant]
     Active Substance: METHOTREXATE SODIUM
     Indication: PRODUCT USED FOR UNKNOWN INDICATION
     Dosage: BETWEEN 27JAN 2015?11 MAY 2015
  2. HUMIRA [Suspect]
     Active Substance: ADALIMUMAB
     Indication: RHEUMATOID ARTHRITIS
     Route: 058
     Dates: start: 201506
  3. MTX [Concomitant]
     Active Substance: METHOTREXATE SODIUM
     Dosage: BETWEEN 11 MAY 2015?20 JUL 2015
  4. MTX [Concomitant]
     Active Substance: METHOTREXATE SODIUM
     Dosage: BETWEEN 27 JAN 2015?11 MAY 2015?BETWEEN 11 MAY 2015?20 JUL2 015

REACTIONS (6)
  - Renal colic [Recovered/Resolved]
  - Calculus urethral [Recovered/Resolved]
  - Urosepsis [Recovered/Resolved]
  - Klebsiella infection [Recovered/Resolved]
  - Pneumonia [Unknown]
  - Nephrolithiasis [Recovered/Resolved]

NARRATIVE: CASE EVENT DATE: 20191211
